FAERS Safety Report 4575081-5 (Version None)
Quarter: 2005Q1

REPORT INFORMATION
  Report Type: 
  Country: None (occurrence: None)
  Receive Date: 20050208
  Receipt Date: 20050120
  Transmission Date: 20050727
  Serious: Yes (Disabling)
  Sender: FDA-Public Use
  Company Number: FI-GLAXOSMITHKLINE-B0365438A

PATIENT
  Age: 12 Year
  Sex: Female

DRUGS (1)
  1. SERETIDE [Suspect]
     Indication: ASTHMA
     Dosage: 2U PER DAY
     Route: 055
     Dates: start: 20030101

REACTIONS (2)
  - RASH [None]
  - SKIN STRIAE [None]
